FAERS Safety Report 9548963 (Version 1)
Quarter: 2013Q3

REPORT INFORMATION
  Report Type: Spontaneous
  Country: US (occurrence: None)
  Receive Date: 20130923
  Receipt Date: 20130923
  Transmission Date: 20140515
  Serious: Yes (Life-Threatening, Hospitalization)
  Sender: FDA-Public Use
  Company Number: None

PATIENT
  Age: 50 Year
  Sex: Female
  Weight: 81.65 kg

DRUGS (1)
  1. CIPRO [Suspect]
     Indication: INFECTION
     Dates: start: 20130920, end: 20130921

REACTIONS (3)
  - Dyspnoea [None]
  - Dysarthria [None]
  - Gait disturbance [None]
